FAERS Safety Report 4357919-X (Version None)
Quarter: 2004Q2

REPORT INFORMATION
  Report Type: 
  Country: None (occurrence: None)
  Receive Date: 20040510
  Receipt Date: 20040430
  Transmission Date: 20050107
  Serious: Yes (Hospitalization)
  Sender: FDA-Public Use
  Company Number: CIP04000918

PATIENT
  Age: 25 Year
  Sex: Female

DRUGS (6)
  1. FURADANTINE (NITROFURANTOIN, MACROCRYSTALS) CAPSULE, 50MG [Suspect]
     Indication: URINARY TRACT INFECTION
     Dosage: 50 MG TWICE DAILY, ORAL
     Route: 048
     Dates: start: 20040407, end: 20040408
  2. MALLIGYNON [Concomitant]
  3. SOTALOL HCL [Concomitant]
  4. TEGRETOL [Concomitant]
  5. TOPIRAMATE [Concomitant]
  6. KEPPRA [Concomitant]

REACTIONS (4)
  - CONDITION AGGRAVATED [None]
  - EPILEPSY [None]
  - LOSS OF CONSCIOUSNESS [None]
  - URINARY INCONTINENCE [None]
